FAERS Safety Report 11317791 (Version 2)
Quarter: 2015Q4

REPORT INFORMATION
  Report Type: Spontaneous
  Country: US (occurrence: US)
  Receive Date: 20150728
  Receipt Date: 20151204
  Transmission Date: 20160304
  Serious: No
  Sender: FDA-Public Use
  Company Number: US-BAYER-2015-381200

PATIENT
  Age: 78 Year
  Sex: Male
  Weight: 99.77 kg

DRUGS (1)
  1. OXYTROL FOR WOMEN [Suspect]
     Active Substance: OXYBUTYNIN
     Indication: PROSTATOMEGALY
     Dosage: 1 DOSE, EVERY 4 DAYS
     Route: 061
     Dates: start: 2014

REACTIONS (3)
  - Device material issue [Unknown]
  - Off label use [Unknown]
  - Expired product administered [Unknown]

NARRATIVE: CASE EVENT DATE: 2014
